FAERS Safety Report 14262269 (Version 1)
Quarter: 2017Q4

REPORT INFORMATION
  Report Type: Spontaneous
  Country: US (occurrence: US)
  Receive Date: 20171208
  Receipt Date: 20171208
  Transmission Date: 20180321
  Serious: No
  Sender: FDA-Public Use
  Company Number: US-KYOWAKIRIN-2017BKK000707

PATIENT

DRUGS (2)
  1. SANCUSO [Suspect]
     Active Substance: GRANISETRON
     Indication: IMPAIRED GASTRIC EMPTYING
     Dosage: 1 PATCH ONCE WEEKLY (CHANGE EVERY 7 DAYS)
     Route: 062
     Dates: start: 20170215
  2. SANCUSO [Suspect]
     Active Substance: GRANISETRON
     Indication: NAUSEA

REACTIONS (5)
  - Product use in unapproved indication [Not Recovered/Not Resolved]
  - Nausea [Unknown]
  - Product adhesion issue [Unknown]
  - Drug prescribing error [Unknown]
  - Product quality issue [Unknown]

NARRATIVE: CASE EVENT DATE: 2017
